FAERS Safety Report 9208719 (Version 1)
Quarter: 2013Q1

REPORT INFORMATION
  Report Type: Spontaneous
  Country: US (occurrence: None)
  Receive Date: 20120807
  Receipt Date: 20120807
  Transmission Date: 20140127
  Serious: Yes (Hospitalization, Other)
  Sender: FDA-Public Use
  Company Number: 2012US-57254

PATIENT
  Sex: Female

DRUGS (1)
  1. ISOTRETINOIN (ISOTRETINOIN) [Suspect]
     Indication: ACNE
     Route: 048

REACTIONS (5)
  - Inflammatory bowel disease [None]
  - Abdominal pain [None]
  - Diarrhoea [None]
  - Frequent bowel movements [None]
  - Rectal haemorrhage [None]
